FAERS Safety Report 7653233-5 (Version None)
Quarter: 2011Q3

REPORT INFORMATION
  Report Type: 
  Country: None (occurrence: None)
  Receive Date: 20110802
  Receipt Date: 20110802
  Transmission Date: 20111222
  Serious: Yes (Disabling)
  Sender: FDA-Public Use
  Company Number: None

PATIENT
  Age: 60 Year
  Sex: Male
  Weight: 83.9154 kg

DRUGS (1)
  1. FENOFIBRATE [Suspect]
     Indication: BLOOD CHOLESTEROL INCREASED
     Dosage: 1 PILL DAILY BEDTIME
     Dates: start: 20090901, end: 20101130

REACTIONS (4)
  - JOINT LOCK [None]
  - MENTAL IMPAIRMENT [None]
  - MUSCULOSKELETAL DISORDER [None]
  - MUSCLE RIGIDITY [None]
